FAERS Safety Report 8388429-0 (Version None)
Quarter: 2012Q2

REPORT INFORMATION
  Report Type: 
  Country: None (occurrence: None)
  Receive Date: 20120525
  Receipt Date: 20120514
  Transmission Date: 20120825
  Serious: No
  Sender: FDA-Public Use
  Company Number: US-ASTRAZENECA-2012SE30709

PATIENT
  Age: 54 Year
  Sex: Male
  Weight: 81.6 kg

DRUGS (3)
  1. NEXIUM [Suspect]
     Route: 048
  2. LEVOXYL [Concomitant]
     Indication: HYPOTHYROIDISM
  3. NEXIUM [Suspect]
     Indication: HIATUS HERNIA
     Route: 048
     Dates: start: 20110101

REACTIONS (1)
  - IRRITABLE BOWEL SYNDROME [None]
